FAERS Safety Report 4935323-0 (Version None)
Quarter: 2006Q1

REPORT INFORMATION
  Report Type: 
  Country: None (occurrence: None)
  Receive Date: 20060307
  Receipt Date: 20060228
  Transmission Date: 20060701
  Serious: Yes (Other)
  Sender: FDA-Public Use
  Company Number: AU-SANOFI-SYNTHELABO-A01200601538

PATIENT
  Sex: Female

DRUGS (6)
  1. ELOXATIN [Suspect]
     Indication: COLORECTAL CANCER STAGE III
     Dosage: DOSE NOT SPECIFIED
     Route: 041
     Dates: start: 20050524, end: 20050524
  2. ELOXATIN [Suspect]
     Dosage: DOSE NOT SPECIFIED, 85% DOSE REDUCTION
     Route: 041
     Dates: start: 20050804, end: 20050804
  3. FLUOROURACIL [Suspect]
     Dosage: DOSE NOT SPECIFIED
     Route: 041
     Dates: start: 20050524, end: 20050525
  4. FLUOROURACIL [Suspect]
     Dosage: DOSE NOT SPECIFIED
     Route: 041
     Dates: start: 20050804, end: 20050805
  5. LEUCOVORIN CALCIUM [Suspect]
     Dosage: DOSE NOT SPECIFIED
     Route: 041
     Dates: start: 20050524, end: 20050525
  6. LEUCOVORIN CALCIUM [Suspect]
     Dosage: DOSE NOT SPECIFIED
     Route: 041
     Dates: start: 20050804, end: 20050805

REACTIONS (4)
  - DRUG INTOLERANCE [None]
  - LETHARGY [None]
  - NEUTROPENIA [None]
  - REFLUX OESOPHAGITIS [None]
